FAERS Safety Report 9319914 (Version 1)
Quarter: 2013Q2

REPORT INFORMATION
  Report Type: Other
  Country: JP (occurrence: JP)
  Receive Date: 20130530
  Receipt Date: 20130530
  Transmission Date: 20140414
  Serious: Yes (Hospitalization, Other)
  Sender: FDA-Public Use
  Company Number: JP-BRISTOL-MYERS SQUIBB COMPANY-18930503

PATIENT
  Age: 85 Year
  Sex: Male
  Weight: 46 kg

DRUGS (2)
  1. AVAPRO [Suspect]
     Indication: ESSENTIAL HYPERTENSION
     Route: 048
     Dates: start: 20090228
  2. GENINAX [Suspect]
     Indication: INFLUENZA
     Route: 048
     Dates: start: 20090311

REACTIONS (1)
  - Hypoglycaemia [Recovered/Resolved]
